FAERS Safety Report 5932672-4 (Version None)
Quarter: 2008Q4

REPORT INFORMATION
  Report Type: 
  Country: None (occurrence: None)
  Receive Date: 20081028
  Receipt Date: 20081022
  Transmission Date: 20090506
  Serious: Yes (Disabling)
  Sender: FDA-Public Use
  Company Number: BR-ASTRAZENECA-2008UW23650

PATIENT
  Age: 77 Year
  Sex: Male
  Weight: 78 kg

DRUGS (3)
  1. ZOLADEX [Suspect]
     Indication: PROSTATE CANCER
     Dosage: 10.8 MG QUARTERLY
     Route: 058
     Dates: start: 20070327
  2. SOMALGIN [Concomitant]
     Indication: PARKINSON'S DISEASE
     Dosage: DAILY
     Route: 048
  3. PROLOPA [Concomitant]
     Indication: PARKINSON'S DISEASE
     Dosage: DAILY
     Route: 048

REACTIONS (2)
  - FALL [None]
  - MUSCULAR WEAKNESS [None]
